FAERS Safety Report 9737347 (Version 1)
Quarter: 2013Q4

REPORT INFORMATION
  Report Type: Spontaneous
  Country: US (occurrence: US)
  Receive Date: 20131206
  Receipt Date: 20131206
  Transmission Date: 20140711
  Serious: No
  Sender: FDA-Public Use
  Company Number: US-BIOGENIDEC-2013BI098422

PATIENT
  Age: 43 Year
  Sex: Female
  Weight: 49 kg

DRUGS (5)
  1. TECFIDERA [Suspect]
     Indication: MULTIPLE SCLEROSIS
     Route: 048
  2. TECFIDERA [Suspect]
     Indication: MULTIPLE SCLEROSIS
     Route: 048
     Dates: start: 20130817
  3. FLEXERIL [Concomitant]
  4. VICODIN 5 [Concomitant]
  5. CLARITIN [Concomitant]

REACTIONS (16)
  - Cough [Unknown]
  - Sinusitis [Unknown]
  - Asthma [Unknown]
  - Hypersensitivity [Unknown]
  - Joint stiffness [Unknown]
  - Rheumatoid arthritis [Unknown]
  - Pain [Unknown]
  - Oropharyngitis fungal [Unknown]
  - Bronchitis [Unknown]
  - Fatigue [Unknown]
  - Arthropathy [Unknown]
  - Hot flush [Recovered/Resolved]
  - Abdominal pain upper [Unknown]
  - Diarrhoea [Recovered/Resolved]
  - Flushing [Unknown]
  - Nausea [Recovered/Resolved]
